FAERS Safety Report 8701767 (Version 5)
Quarter: 2012Q4

REPORT INFORMATION
  Report Type: 
  Country: US (occurrence: US)
  Receive Date: 20120803
  Receipt Date: 20121114
  Transmission Date: 20130627
  Serious: Yes (Hospitalization)
  Sender: FDA-Public Use
  Company Number: PHEH2012US009415

PATIENT
  Sex: Female

DRUGS (3)
  1. GLEEVEC [Suspect]
     Indication: GASTROINTESTINAL STROMAL TUMOUR
     Dosage: 100 mg, daily
     Route: 048
     Dates: start: 20120410
  2. GLEEVEC [Suspect]
     Dosage: 400 mg, daily
     Route: 048
  3. GLEEVEC [Suspect]
     Dosage: 400 mg, QD
     Route: 048
     Dates: start: 20120412

REACTIONS (10)
  - Pneumothorax [Unknown]
  - Rash [Unknown]
  - Fatigue [Unknown]
  - Pruritus [Unknown]
  - Eye oedema [Unknown]
  - Face oedema [Unknown]
  - Oedema peripheral [Unknown]
  - Rash macular [Unknown]
  - Malaise [Unknown]
  - Skin discolouration [Unknown]
